FAERS Safety Report 8388283-7 (Version None)
Quarter: 2012Q2

REPORT INFORMATION
  Report Type: 
  Country: None (occurrence: None)
  Receive Date: 20120525
  Receipt Date: 20120509
  Transmission Date: 20120825
  Serious: Yes (Other)
  Sender: FDA-Public Use
  Company Number: CHPA2012US010815

PATIENT
  Sex: Female

DRUGS (5)
  1. OXYFAST [Concomitant]
  2. EXCEDRIN BACK \+ BODY CAPLETS [Suspect]
     Indication: PAIN
     Dosage: UNK, UNK
     Route: 048
     Dates: end: 20120101
  3. EXCEDRIN EXTRA STRENGTH TABLETS [Suspect]
     Indication: PAIN
     Dosage: 4 DF, UNK
     Route: 048
  4. EXCEDRIN SINUS HEADACHE [Suspect]
     Dosage: UNK, UNK
     Route: 048
     Dates: end: 20120101
  5. EXCEDRIN TENSION HEADACHE CAPLETS [Suspect]
     Indication: PAIN
     Dosage: UNK, UNK
     Dates: end: 20120101

REACTIONS (6)
  - FEELING ABNORMAL [None]
  - MALAISE [None]
  - HEADACHE [None]
  - CHRONIC SINUSITIS [None]
  - WITHDRAWAL SYNDROME [None]
  - DRUG DEPENDENCE [None]
